FAERS Safety Report 9006512 (Version 1)
Quarter: 2013Q1

REPORT INFORMATION
  Report Type: Spontaneous
  Country: US (occurrence: US)
  Receive Date: 20130110
  Receipt Date: 20130110
  Transmission Date: 20140127
  Serious: Yes (Other)
  Sender: FDA-Public Use
  Company Number: US-ELI_LILLY_AND_COMPANY-US201301001299

PATIENT
  Age: 73 Year
  Sex: Female

DRUGS (2)
  1. FORTEO [Suspect]
     Indication: OSTEOPOROSIS
     Dosage: UNK, QD
     Dates: start: 20121102
  2. BONIVA [Concomitant]

REACTIONS (8)
  - Cardiac failure [Unknown]
  - Blood pressure increased [Unknown]
  - Tachycardia [Unknown]
  - Femur fracture [Unknown]
  - Nausea [Unknown]
  - Dizziness [Unknown]
  - Muscular weakness [Unknown]
  - Malaise [Unknown]
